FAERS Safety Report 8381184-X (Version None)
Quarter: 2012Q2

REPORT INFORMATION
  Report Type: 
  Country: None (occurrence: None)
  Receive Date: 20120523
  Receipt Date: 20120517
  Transmission Date: 20120825
  Serious: No
  Sender: FDA-Public Use
  Company Number: US-BAYER-2012-049412

PATIENT
  Age: 53 Year
  Sex: Female
  Weight: 57.143 kg

DRUGS (1)
  1. BETASERON [Suspect]
     Indication: MULTIPLE SCLEROSIS
     Dosage: 0.250, QOD
     Route: 058
     Dates: start: 20090127, end: 20120411

REACTIONS (1)
  - MEMORY IMPAIRMENT [None]
